FAERS Safety Report 12556158 (Version 1)
Quarter: 2016Q3

REPORT INFORMATION
  Report Type: Spontaneous
  Country: US (occurrence: None)
  Receive Date: 20160713
  Receipt Date: 20160713
  Transmission Date: 20161109
  Serious: No
  Sender: FDA-Public Use
  Company Number: None

PATIENT
  Age: 34 Year
  Sex: Female

DRUGS (2)
  1. SPRYCEL [Suspect]
     Active Substance: DASATINIB
  2. GLEEVEC [Suspect]
     Active Substance: IMATINIB MESYLATE

REACTIONS (6)
  - Oedema [None]
  - Dyspnoea exertional [None]
  - Pleuritic pain [None]
  - Musculoskeletal stiffness [None]
  - Migraine [None]
  - Dyspnoea at rest [None]

NARRATIVE: CASE EVENT DATE: 20160420
